FAERS Safety Report 21513076 (Version 1)
Quarter: 2022Q4

REPORT INFORMATION
  Report Type: Spontaneous
  Country: US (occurrence: None)
  Receive Date: 20221026
  Receipt Date: 20221026
  Transmission Date: 20230112
  Serious: Yes (Hospitalization)
  Sender: FDA-Public Use
  Company Number: None

PATIENT
  Sex: Female

DRUGS (2)
  1. PULMOZYME [Suspect]
     Active Substance: DORNASE ALFA
     Indication: Infective pulmonary exacerbation of cystic fibrosis
     Dosage: 1MG/ML ONCE DAILY INHALED?
     Route: 055
     Dates: start: 201802
  2. PULMOZYME [Suspect]
     Active Substance: DORNASE ALFA
     Indication: Asthma

REACTIONS (1)
  - Emergency care examination [None]
